FAERS Safety Report 5715865-0 (Version None)
Quarter: 2008Q2

REPORT INFORMATION
  Report Type: 
  Country: None (occurrence: None)
  Receive Date: 20080424
  Receipt Date: 20080415
  Transmission Date: 20081010
  Serious: Yes (Hospitalization)
  Sender: FDA-Public Use
  Company Number: US-JNJFOC-20080404271

PATIENT
  Sex: Male

DRUGS (1)
  1. REMICADE [Suspect]
     Indication: DRUG EXPOSURE VIA BREAST MILK
     Route: 042

REACTIONS (5)
  - ANOREXIA [None]
  - DRUG EXPOSURE VIA BREAST MILK [None]
  - HYPERSOMNIA [None]
  - LETHARGY [None]
  - WEIGHT DECREASED [None]
